FAERS Safety Report 4921345-2 (Version None)
Quarter: 2006Q1

REPORT INFORMATION
  Report Type: 
  Country: None (occurrence: None)
  Receive Date: 20060224
  Receipt Date: 20060214
  Transmission Date: 20060701
  Serious: Yes (Hospitalization)
  Sender: FDA-Public Use
  Company Number: AU-JNJFOC-20060203647

PATIENT
  Sex: Female

DRUGS (13)
  1. RISPERIDONE [Suspect]
     Indication: DRUG USE FOR UNKNOWN INDICATION
  2. TEMAZEPAM [Suspect]
     Indication: DRUG USE FOR UNKNOWN INDICATION
  3. OMEPRAZOLE [Concomitant]
  4. ASPIRIN [Concomitant]
  5. TIOTROPIUM [Concomitant]
  6. POLY-TEARS [Concomitant]
  7. POLY-TEARS [Concomitant]
  8. THYROXINE SODIUM [Concomitant]
  9. SIMVASTATIN [Concomitant]
  10. CALTRATE [Concomitant]
  11. ACETAMINOPHEN [Concomitant]
  12. CELECOXIB [Concomitant]
  13. OSTELIN [Concomitant]

REACTIONS (7)
  - CLONUS [None]
  - CONFUSIONAL STATE [None]
  - DEHYDRATION [None]
  - DEPRESSED LEVEL OF CONSCIOUSNESS [None]
  - DISINHIBITION [None]
  - HYPERGLYCAEMIA [None]
  - SEDATION [None]
